FAERS Safety Report 7976890-2 (Version None)
Quarter: 2011Q4

REPORT INFORMATION
  Report Type: 
  Country: None (occurrence: None)
  Receive Date: 20111213
  Receipt Date: 20111110
  Transmission Date: 20120403
  Serious: No
  Sender: FDA-Public Use
  Company Number: US-AMGEN-USASP2011059223

PATIENT
  Sex: Female
  Weight: 65.306 kg

DRUGS (6)
  1. MULTIVITAMIN                       /00097801/ [Concomitant]
     Dosage: UNK
  2. FOLIC ACID [Concomitant]
     Dosage: 5 MG, UNK
  3. CHORIONIC GONADOTROPIN [Concomitant]
     Dosage: UNK
     Dates: start: 20110401
  4. ENBREL [Suspect]
     Indication: RHEUMATOID ARTHRITIS
     Dosage: 50 MG, QWK
     Route: 058
     Dates: start: 20111104
  5. METHOTREXATE [Concomitant]
     Dosage: 2.5 MG, UNK
  6. PROFEN                             /00109201/ [Concomitant]
     Dosage: 200 MG, UNK

REACTIONS (2)
  - WEIGHT FLUCTUATION [None]
  - INSOMNIA [None]
